FAERS Safety Report 16449368 (Version 2)
Quarter: 2019Q2

REPORT INFORMATION
  Report Type: Spontaneous
  Country: BG (occurrence: BG)
  Receive Date: 20190619
  Receipt Date: 20190626
  Transmission Date: 20190711
  Serious: Yes (Death, Other)
  Sender: FDA-Public Use
  Company Number: BG-ROCHE-2336919

PATIENT
  Age: 65 Year
  Sex: Male

DRUGS (15)
  1. ACTILYSE [Suspect]
     Active Substance: ALTEPLASE
     Indication: CEREBROVASCULAR ACCIDENT
     Route: 065
     Dates: start: 20181016, end: 20181016
  2. NOOTROPIL [Concomitant]
     Active Substance: PIRACETAM
     Route: 065
     Dates: start: 201810
  3. ACTILYSE [Suspect]
     Active Substance: ALTEPLASE
     Indication: PROPHYLAXIS
  4. QUAMATEL [Concomitant]
     Active Substance: FAMOTIDINE
     Dosage: 1 FL
     Route: 065
     Dates: start: 201810
  5. MEDAXONE [Concomitant]
     Route: 065
     Dates: start: 201810
  6. DIAZEPAM. [Concomitant]
     Active Substance: DIAZEPAM
     Route: 065
     Dates: start: 201810
  7. ANALGIN [FENPIVERINIUM BROMIDE;METAMIZOLE SODIUM;PITOFENONE HYDROCHLOR [Concomitant]
     Dosage: 1 AMP
     Route: 065
     Dates: start: 201810
  8. SOMAZINA [CITICOLINE] [Concomitant]
     Dosage: 2X1 AMP./ X1 AMP
     Route: 065
     Dates: start: 201810
  9. VICETIN [Concomitant]
     Route: 065
     Dates: start: 201810
  10. CHLOPHAZOLIN [Concomitant]
     Active Substance: CLONIDINE HYDROCHLORIDE
     Dosage: 3X1/2 AMP. / X1/2 AMP
     Route: 065
     Dates: start: 201810
  11. DORMICUM (INJ) [Concomitant]
     Active Substance: MIDAZOLAM HYDROCHLORIDE
     Route: 065
  12. SODIUM CHLORIDE. [Concomitant]
     Active Substance: SODIUM CHLORIDE
     Dosage: 1 BAG
     Route: 065
     Dates: start: 201810
  13. PERFALGAN [Concomitant]
     Active Substance: ACETAMINOPHEN
     Dosage: 1 FL
     Route: 065
     Dates: start: 201810
  14. PERLINGANIT [Concomitant]
     Active Substance: NITROGLYCERIN
     Dosage: 1 FL
     Route: 065
     Dates: start: 201810
  15. CALCIUM GLUCONATE. [Concomitant]
     Active Substance: CALCIUM GLUCONATE
     Dosage: 2 X 1 AMP
     Route: 065
     Dates: start: 201810

REACTIONS (5)
  - Cerebral thrombosis [Unknown]
  - Haematuria [Unknown]
  - Diabetes insipidus [Unknown]
  - Cardiopulmonary failure [Fatal]
  - Coma [Fatal]
